FAERS Safety Report 7578747-8 (Version None)
Quarter: 2011Q2

REPORT INFORMATION
  Report Type: 
  Country: None (occurrence: None)
  Receive Date: 20110628
  Receipt Date: 20110615
  Transmission Date: 20111010
  Serious: Yes (Other)
  Sender: FDA-Public Use
  Company Number: US-JNJFOC-20110607682

PATIENT
  Sex: Female
  Weight: 56.25 kg

DRUGS (3)
  1. PROZAC [Concomitant]
     Route: 048
  2. REMICADE [Suspect]
     Indication: RHEUMATOID ARTHRITIS
     Route: 042
     Dates: start: 20090101
  3. SYNTHROID [Concomitant]
     Route: 048

REACTIONS (5)
  - ARTHROPOD BITE [None]
  - INFECTION [None]
  - DIVERTICULITIS [None]
  - ABDOMINAL PAIN UPPER [None]
  - BODY TEMPERATURE INCREASED [None]
